FAERS Safety Report 5027190-4 (Version None)
Quarter: 2006Q2

REPORT INFORMATION
  Report Type: 
  Country: None (occurrence: None)
  Receive Date: 20060501
  Receipt Date: 20060119
  Transmission Date: 20061013
  Serious: No
  Sender: FDA-Public Use
  Company Number: 2006PV007353

PATIENT
  Age: 63 Year
  Sex: Female
  Weight: 128.8216 kg

DRUGS (4)
  1. SYMLIN INJECTION (0.6 MG/ML) [Suspect]
     Indication: DIABETES MELLITUS
     Dosage: 60 MG TID SC;
     Route: 058
     Dates: end: 20060107
  2. SYMLIN INJECTION (0.6 MG/ML) [Suspect]
     Indication: DIABETES MELLITUS
     Dosage: 60 MG TID SC;
     Route: 058
     Dates: start: 20051201
  3. LISINOPRIL [Concomitant]
  4. PROMETRIUM [Concomitant]

REACTIONS (1)
  - WEIGHT INCREASED [None]
